FAERS Safety Report 10386077 (Version 1)
Quarter: 2014Q1

REPORT INFORMATION
  Report Type: Spontaneous
  Country: US (occurrence: None)
  Receive Date: 20140306
  Receipt Date: 20140306
  Transmission Date: 20141002
  Serious: Yes (Other)
  Sender: FDA-Public Use
  Company Number: 163-21880-13082518

PATIENT
  Age: 80 Year
  Sex: Male
  Weight: 82.6 kg

DRUGS (11)
  1. REVLIMID (LENALIDOMIDE) (25 MILLIGRAM, CAPSULES) [Suspect]
     Indication: PLASMA CELL MYELOMA
     Dosage: 18.75 MG, 21 IN 28 D, PO
     Route: 048
     Dates: start: 20130422
  2. DEXAMETHASONE (DEXAMETHASONE) [Concomitant]
  3. DONEPEZIL HCL (DONEPEZIL HYDROCHLORIDE) [Concomitant]
  4. DRONABINOL (DRONABINOL) [Concomitant]
  5. NEXIUM (ESOMEPRAZOLE) [Concomitant]
  6. METOCLOPRAMIDE HCL (METOCLOPRAMIDE HYDROCHLORIDE) [Concomitant]
  7. MIRTAZAPINE (MIRTAZAPINE) [Concomitant]
  8. ONDANSETRON HCL (ONDANSETRON HYDROCHLORIDE) [Concomitant]
  9. OXYCODONE HCL (OXYCODONE HYDROCHLORIDE) [Concomitant]
  10. METAMUCIL MULTIHELATH FIB (ISPAGHULA) [Concomitant]
  11. SENNA (SENNA) [Concomitant]

REACTIONS (1)
  - Thrombosis [None]
